FAERS Safety Report 9933942 (Version 1)
Quarter: 2014Q1

REPORT INFORMATION
  Report Type: Spontaneous
  Country: US (occurrence: US)
  Receive Date: 20140228
  Receipt Date: 20140228
  Transmission Date: 20141002
  Serious: No
  Sender: FDA-Public Use
  Company Number: US-ABBVIE-14P-163-1199124-00

PATIENT
  Age: 39 Year
  Sex: Male
  Weight: 79.45 kg

DRUGS (3)
  1. ANDROGEL [Suspect]
     Indication: BLOOD TESTOSTERONE DECREASED
     Dosage: 2 PUMPS
     Route: 061
     Dates: start: 201301, end: 201305
  2. ANDROGEL [Suspect]
     Dosage: 2 PUMPS
     Route: 061
     Dates: start: 201312
  3. LAMOTRIGINE [Concomitant]
     Indication: CONVULSION

REACTIONS (3)
  - Drug administered at inappropriate site [Not Recovered/Not Resolved]
  - Application site acne [Recovered/Resolved]
  - Joint swelling [Not Recovered/Not Resolved]
